FAERS Safety Report 7049890-7 (Version None)
Quarter: 2010Q4

REPORT INFORMATION
  Report Type: 
  Country: None (occurrence: None)
  Receive Date: 20101018
  Receipt Date: 20100930
  Transmission Date: 20110411
  Serious: Yes (Hospitalization)
  Sender: FDA-Public Use
  Company Number: US-BAYER-201036807NA

PATIENT
  Age: 29 Year
  Sex: Female
  Weight: 77 kg

DRUGS (4)
  1. YASMIN [Suspect]
     Indication: ORAL CONTRACEPTION
     Route: 048
     Dates: start: 20010101, end: 20060101
  2. OCELLA [Suspect]
     Indication: ORAL CONTRACEPTION
     Route: 048
     Dates: start: 20070101, end: 20090101
  3. IBUPROFEN [Concomitant]
  4. SYNTHROID [Concomitant]

REACTIONS (1)
  - ABDOMINAL PAIN UPPER [None]
